FAERS Safety Report 4744651-3 (Version None)
Quarter: 2005Q3

REPORT INFORMATION
  Report Type: 
  Country: None (occurrence: None)
  Receive Date: 20050815
  Receipt Date: 20050804
  Transmission Date: 20060218
  Serious: Yes (Other)
  Sender: FDA-Public Use
  Company Number: US-JNJFOC-20050801246

PATIENT
  Sex: Female
  Weight: 88 kg

DRUGS (16)
  1. INFLIXIMAB [Suspect]
     Indication: RHEUMATOID ARTHRITIS
     Route: 042
  2. METHOTREXATE [Concomitant]
  3. AMBIEN [Concomitant]
     Dosage: 10 MG AT BEDTIME
  4. CELEBREX [Concomitant]
  5. ATENOLOL [Concomitant]
  6. PREMARIN [Concomitant]
  7. LISINOPRIL [Concomitant]
  8. ZOLOFT [Concomitant]
  9. NEXIUM [Concomitant]
  10. LEVOXYL [Concomitant]
  11. PREDNISONE [Concomitant]
  12. ZYRTEC [Concomitant]
  13. TRAMADOL HCL [Concomitant]
     Dosage: 50 MG - 100 MG AS NEEDED
  14. PROPOXYPHENE HCL [Concomitant]
     Dosage: 100/650, 2 - 4 TABLETS DAILY
  15. TYLENOL (CAPLET) [Concomitant]
  16. TRILEPTOL [Concomitant]

REACTIONS (1)
  - BASAL CELL CARCINOMA [None]
